FAERS Safety Report 5375725-4 (Version None)
Quarter: 2007Q2

REPORT INFORMATION
  Report Type: 
  Country: None (occurrence: None)
  Receive Date: 20070628
  Receipt Date: 20070618
  Transmission Date: 20071010
  Serious: Yes (Hospitalization)
  Sender: FDA-Public Use
  Company Number: 2007BI008268

PATIENT
  Age: 40 Year
  Sex: Female

DRUGS (7)
  1. AVONEX [Suspect]
     Indication: MULTIPLE SCLEROSIS
     Dosage: 30 UG; QW; IM
     Route: 030
     Dates: start: 20060327
  2. CYMBALTA [Concomitant]
  3. MAXALT [Concomitant]
  4. NAPROSYN [Concomitant]
  5. NORTRIPTYLINE HCL [Concomitant]
  6. ANTIVERT [Concomitant]
  7. CALCIUM CHLORIDE [Concomitant]

REACTIONS (3)
  - APPENDICECTOMY [None]
  - COLONIC OBSTRUCTION [None]
  - INTESTINAL MALROTATION [None]
